FAERS Safety Report 4346386-8 (Version None)
Quarter: 2004Q2

REPORT INFORMATION
  Report Type: 
  Country: None (occurrence: None)
  Receive Date: 20040426
  Receipt Date: 20030912
  Transmission Date: 20050107
  Serious: No
  Sender: FDA-Public Use
  Company Number: US-GLAXOSMITHKLINE-A0425671A

PATIENT
  Sex: Female

DRUGS (6)
  1. ZOFRAN [Suspect]
     Route: 048
     Dates: start: 20030829
  2. ZOLOFT [Concomitant]
  3. PROPYLTHIOURACIL [Concomitant]
  4. ZANTAC 75 [Concomitant]
  5. REGLAN [Concomitant]
  6. BENADRYL [Concomitant]

REACTIONS (5)
  - ANXIETY [None]
  - DEPRESSION [None]
  - DRUG EXPOSURE DURING PREGNANCY [None]
  - MOOD SWINGS [None]
  - SUICIDAL IDEATION [None]
